FAERS Safety Report 6485427-9 (Version None)
Quarter: 2009Q4

REPORT INFORMATION
  Report Type: 
  Country: None (occurrence: None)
  Receive Date: 20091209
  Receipt Date: 20091130
  Transmission Date: 20100525
  Serious: Yes (Hospitalization)
  Sender: FDA-Public Use
  Company Number: ES-ABBOTT-09P-144-0611424-00

PATIENT
  Age: 78 Year
  Sex: Male

DRUGS (2)
  1. KALETRA [Suspect]
     Indication: HIV INFECTION CDC CATEGORY B1
     Dosage: 2 TABS Q12HR
     Route: 048
     Dates: start: 20090101, end: 20090821
  2. TRUVADA [Suspect]
     Indication: HIV INFECTION CDC CATEGORY B1
     Dosage: 200MG/245MG, 1 TABLET DAILY
     Route: 048
     Dates: start: 20090522, end: 20090821

REACTIONS (2)
  - DIARRHOEA [None]
  - RENAL FAILURE ACUTE [None]
